FAERS Safety Report 6935860-3 (Version None)
Quarter: 2010Q3

REPORT INFORMATION
  Report Type: 
  Country: None (occurrence: None)
  Receive Date: 20100819
  Receipt Date: 20100819
  Transmission Date: 20110219
  Serious: Yes (Hospitalization)
  Sender: FDA-Public Use
  Company Number: None

PATIENT
  Sex: Male
  Weight: 65.5 kg

DRUGS (6)
  1. ISOVUE 300 ML BRACCO DIAGNOSTICS INC. [Suspect]
     Indication: SCAN WITH CONTRAST
     Dosage: 125 CC ONCE INTRAVENOUSLY
     Route: 042
     Dates: start: 20100719, end: 20100719
  2. ACETAMINOPHEN [Concomitant]
  3. ATIVAN [Concomitant]
  4. FLUOROURACIL [Concomitant]
  5. LEUCOVER [Concomitant]
  6. OXCILIPLATIN [Concomitant]

REACTIONS (2)
  - THROAT IRRITATION [None]
  - URTICARIA [None]
